FAERS Safety Report 4881788-2 (Version None)
Quarter: 2006Q1

REPORT INFORMATION
  Report Type: 
  Country: None (occurrence: None)
  Receive Date: 20060112
  Receipt Date: 20060112
  Transmission Date: 20060701
  Serious: Yes (Hospitalization, Other)
  Sender: FDA-Public Use
  Company Number: None

PATIENT
  Age: 21 Month
  Sex: Female
  Weight: 12.2471 kg

DRUGS (1)
  1. ADDERALL 30 [Suspect]

REACTIONS (5)
  - ACCIDENTAL DRUG INTAKE BY CHILD [None]
  - DYSTONIA [None]
  - MEDICATION ERROR [None]
  - VISION BLURRED [None]
  - VOMITING [None]
